FAERS Safety Report 24183805 (Version 1)
Quarter: 2024Q3

REPORT INFORMATION
  Report Type: Spontaneous
  Country: BR (occurrence: BR)
  Receive Date: 20240807
  Receipt Date: 20240807
  Transmission Date: 20241016
  Serious: Yes (Hospitalization, Other)
  Sender: GLAXOSMITHKLINE
  Company Number: BR-GLAXOSMITHKLINE-BR2024AMR093584

PATIENT

DRUGS (1)
  1. ALBUTEROL [Suspect]
     Active Substance: ALBUTEROL
     Indication: Lung disorder
     Dosage: UNK,5MG/ML FR.10ML CC
     Route: 055

REACTIONS (6)
  - Hospitalisation [Unknown]
  - Respiratory arrest [Unknown]
  - Product use in unapproved indication [Unknown]
  - Drug effective for unapproved indication [Unknown]
  - Incorrect route of product administration [Unknown]
  - Product availability issue [Unknown]
